FAERS Safety Report 22297354 (Version 2)
Quarter: 2023Q2

REPORT INFORMATION
  Report Type: Report from Study
  Country: US (occurrence: US)
  Receive Date: 20230509
  Receipt Date: 20230512
  Transmission Date: 20230722
  Serious: No
  Sender: FDA-Public Use
  Company Number: US-002147023-NVSC2023US103098

PATIENT
  Age: 64 Year
  Sex: Male

DRUGS (2)
  1. ENTRESTO [Suspect]
     Active Substance: SACUBITRIL\VALSARTAN
     Indication: Product used for unknown indication
     Dosage: 1 DOSAGE FORM, BID (24/26 MG)
     Route: 065
     Dates: start: 20221223
  2. MEXILETINE [Suspect]
     Active Substance: MEXILETINE
     Indication: Product used for unknown indication
     Route: 065

REACTIONS (5)
  - Dyspepsia [Not Recovered/Not Resolved]
  - Procedural pain [Unknown]
  - Post procedural contusion [Unknown]
  - Plantar fasciitis [Unknown]
  - Concomitant disease aggravated [Not Recovered/Not Resolved]

NARRATIVE: CASE EVENT DATE: 20230101
